FAERS Safety Report 14075563 (Version 1)
Quarter: 2017Q4

REPORT INFORMATION
  Report Type: Spontaneous
  Country: US (occurrence: US)
  Receive Date: 20171010
  Receipt Date: 20171010
  Transmission Date: 20180321
  Serious: No
  Sender: FDA-Public Use
  Company Number: US-MYLANLABS-2016M1052176

PATIENT
  Sex: Male

DRUGS (3)
  1. FLURAZEPAM HYDROCHLORIDE CAPSULES, USP [Suspect]
     Active Substance: FLURAZEPAM HYDROCHLORIDE
     Indication: ANXIETY
     Dosage: 15 MG, PRN
     Route: 048
  2. FLURAZEPAM HYDROCHLORIDE CAPSULES, USP [Suspect]
     Active Substance: FLURAZEPAM HYDROCHLORIDE
     Indication: INSOMNIA
  3. ALPRAZOLAM. [Concomitant]
     Active Substance: ALPRAZOLAM
     Indication: INSOMNIA
     Dosage: 0.5 MG, QPM

REACTIONS (2)
  - Expired product administered [Recovered/Resolved]
  - Drug effect decreased [Not Recovered/Not Resolved]

NARRATIVE: CASE EVENT DATE: 2010
